FAERS Safety Report 5569195-0 (Version None)
Quarter: 2007Q4

REPORT INFORMATION
  Report Type: 
  Country: None (occurrence: None)
  Receive Date: 20071220
  Receipt Date: 20070830
  Transmission Date: 20080405
  Serious: No
  Sender: FDA-Public Use
  Company Number: A0677770A

PATIENT
  Age: 78 Year
  Sex: Male

DRUGS (4)
  1. AVODART [Suspect]
     Dosage: 1CAP PER DAY
     Route: 048
     Dates: start: 20070822, end: 20070828
  2. ASPIRIN [Concomitant]
  3. FLOMAX [Concomitant]
  4. AVODART [Concomitant]

REACTIONS (1)
  - DYSURIA [None]
